FAERS Safety Report 9935626 (Version 2)
Quarter: 2014Q1

REPORT INFORMATION
  Report Type: Spontaneous
  Country: US (occurrence: US)
  Receive Date: 20140228
  Receipt Date: 20140228
  Transmission Date: 20141002
  Serious: Yes (Other)
  Sender: FDA-Public Use
  Company Number: CHPA2014US002871

PATIENT
  Age: 82 Year
  Sex: Female

DRUGS (3)
  1. CONTROL PLP [Suspect]
     Dosage: 7 MG, UNK
     Route: 062
     Dates: start: 201401
  2. CONTROL PLP [Suspect]
     Dosage: 7 MG, UNK
     Route: 062
     Dates: start: 201402
  3. PRIVATE LABEL [Suspect]
     Indication: OFF LABEL USE
     Dosage: 14 MG, UNK
     Dates: start: 20140103, end: 201401

REACTIONS (8)
  - Sinusitis [Recovering/Resolving]
  - Depressed mood [Recovering/Resolving]
  - Feeling abnormal [Recovering/Resolving]
  - Restlessness [Recovered/Resolved]
  - Nervousness [Recovered/Resolved]
  - Somnolence [Unknown]
  - Inappropriate schedule of drug administration [Unknown]
  - Incorrect dose administered [Unknown]
